FAERS Safety Report 6058742-0 (Version None)
Quarter: 2009Q1

REPORT INFORMATION
  Report Type: 
  Country: None (occurrence: None)
  Receive Date: 20090130
  Receipt Date: 20090119
  Transmission Date: 20090719
  Serious: Yes (Other)
  Sender: FDA-Public Use
  Company Number: FR-PFIZER INC-2009158345

PATIENT

DRUGS (10)
  1. CYTARABINE [Suspect]
     Indication: ACUTE MYELOID LEUKAEMIA
     Dosage: 100 MG/M2, UNK
     Route: 042
     Dates: start: 20081121
  2. ZAVEDOS [Suspect]
     Indication: ACUTE MYELOID LEUKAEMIA
     Dosage: 80 MG/M2, UNK
     Route: 042
     Dates: start: 20081121
  3. OFLOXACIN [Suspect]
     Route: 042
     Dates: start: 20081127, end: 20081201
  4. KARDEGIC [Concomitant]
  5. NEBILOX [Concomitant]
  6. ADANCOR [Concomitant]
  7. XATRAL [Concomitant]
  8. ROCEPHIN [Concomitant]
     Route: 042
     Dates: start: 20081127, end: 20081201
  9. TIENAM [Concomitant]
     Dosage: UNK
     Route: 042
     Dates: start: 20081201
  10. VANCOMYCIN HYDROCHLORIDE [Concomitant]
     Dosage: UNK
     Dates: start: 20081130

REACTIONS (3)
  - ATRIAL FIBRILLATION [None]
  - DERMATITIS BULLOUS [None]
  - TENDON DISORDER [None]
